FAERS Safety Report 8559538-8 (Version None)
Quarter: 2012Q3

REPORT INFORMATION
  Report Type: 
  Country: None (occurrence: None)
  Receive Date: 20120802
  Receipt Date: 20120725
  Transmission Date: 20120928
  Serious: Yes (Hospitalization)
  Sender: FDA-Public Use
  Company Number: US-BAYER-2012-076268

PATIENT
  Age: 41 Year
  Sex: Female
  Weight: 90.1 kg

DRUGS (24)
  1. BUSPAR [Concomitant]
     Dosage: 10 MG, BID,TAKE TWO TO THREE TABLETS TWO TIMES A DAY
     Route: 048
  2. ROBINUL FORTE [Concomitant]
     Dosage: 1 MG, TWO TO THREE TIMES A DAY
  3. TAGAMET [Concomitant]
  4. SPIRONOLACTONE [Concomitant]
     Dosage: 100 MG, DAILY
     Route: 048
  5. XANAX [Concomitant]
     Dosage: 1 MG, Q4HR, PRN
     Route: 048
  6. PROTONIX [Concomitant]
  7. REGLAN [Concomitant]
     Dosage: 10 MG, QD
  8. TOPROL-XL [Concomitant]
     Dosage: 50 MG, QD
     Route: 048
  9. TRAMADOL/APAP/ULTRACET [Concomitant]
     Indication: PAIN
     Dosage: 37.5/325 MG TAKE ONE OR TWO EVERY FOUR TO SIX HOURS
     Route: 048
  10. YAZ [Suspect]
     Indication: SEBORRHOEA
     Dosage: UNK
     Dates: start: 20070228, end: 20070716
  11. XANAX [Concomitant]
     Indication: ANXIETY
     Dosage: 1 MG, TWELVW HOURS, PRN
     Route: 048
  12. VITAMIN B-12 [Concomitant]
     Dosage: 1000 MCG MONTHLY TIMES THREE, THEN DAILY
     Route: 030
  13. GLYCOPYRROLATE [Concomitant]
     Dosage: 1 MG, BID
     Route: 048
  14. CLONAZEPAM [Concomitant]
     Dosage: 1 MG, UNK, ONE EVERY MORNING AND ONE EVERY EVENING
     Route: 048
  15. HYDROCODONE BITARTRATE + ACETAMINOPHEN [Concomitant]
     Indication: PAIN
     Dosage: 5/500 MG ONE OR TWO EVERY SIX HOURS AS NEEDED
     Route: 048
  16. SYNTHROID [Concomitant]
     Dosage: 100 MCG DAILY
  17. ACIPHEX [Concomitant]
     Dosage: 20 MG, BID
  18. METOCLOPRAMIDE [Concomitant]
     Dosage: 10 MG, ONE EVERY 8 HOURS, PRN
     Route: 048
  19. ZANTAC [Concomitant]
  20. EFFEXOR XR [Concomitant]
     Dosage: 75 MG, TAKE THREE EVERY MORNING
  21. FISH OIL [Concomitant]
     Dosage: DAILY
  22. SUCRALFATE [Concomitant]
     Dosage: 1 G, TID
     Route: 048
  23. ZOLOFT [Concomitant]
     Dosage: 50 MG, DAILY
     Route: 048
  24. PROTON PUMP INHIBITORS [Concomitant]

REACTIONS (4)
  - LUNG INFILTRATION [None]
  - PAIN IN EXTREMITY [None]
  - DYSPNOEA [None]
  - PULMONARY EMBOLISM [None]
